FAERS Safety Report 6152099-2 (Version None)
Quarter: 2009Q2

REPORT INFORMATION
  Report Type: 
  Country: None (occurrence: None)
  Receive Date: 20090410
  Receipt Date: 20090402
  Transmission Date: 20091009
  Serious: Yes (Hospitalization)
  Sender: FDA-Public Use
  Company Number: PHEH2009US03346

PATIENT
  Sex: Female
  Weight: 31.746 kg

DRUGS (1)
  1. FOCALIN XR [Suspect]
     Dosage: 15 MG, QD
     Route: 048

REACTIONS (4)
  - AGGRESSION [None]
  - DEPRESSION [None]
  - NEUROLEPTIC MALIGNANT SYNDROME [None]
  - SCREAMING [None]
